FAERS Safety Report 4813912-1 (Version None)
Quarter: 2005Q4

REPORT INFORMATION
  Report Type: 
  Country: None (occurrence: None)
  Receive Date: 20051028
  Receipt Date: 20040217
  Transmission Date: 20060501
  Serious: No
  Sender: FDA-Public Use
  Company Number: US-GLAXOSMITHKLINE-A0498514A

PATIENT
  Age: 73 Year
  Sex: Male

DRUGS (8)
  1. SEREVENT [Suspect]
     Indication: ASTHMA
     Dosage: 1PUFF TWICE PER DAY
     Route: 055
  2. ADVAIR DISKUS 100/50 [Suspect]
     Indication: ASTHMA
     Dosage: 1PUFF TWICE PER DAY
     Route: 055
     Dates: start: 20040101, end: 20040201
  3. ASPIRIN [Concomitant]
  4. VITAMIN D [Concomitant]
  5. VITAMIN E [Concomitant]
  6. ALTACE [Concomitant]
  7. ACTOS [Concomitant]
  8. IMDUR [Concomitant]

REACTIONS (6)
  - BACK PAIN [None]
  - CHEST DISCOMFORT [None]
  - DYSPNOEA [None]
  - OVERDOSE [None]
  - PAIN IN EXTREMITY [None]
  - THERAPEUTIC RESPONSE DECREASED [None]
